FAERS Safety Report 6210016-0 (Version None)
Quarter: 2009Q2

REPORT INFORMATION
  Report Type: 
  Country: None (occurrence: None)
  Receive Date: 20090529
  Receipt Date: 20090529
  Transmission Date: 20091009
  Serious: No
  Sender: FDA-Public Use
  Company Number: None

PATIENT
  Age: 55 Year
  Sex: Male
  Weight: 79.38 kg

DRUGS (2)
  1. PRAZSOIN HCL [Suspect]
     Indication: BENIGN PROSTATIC HYPERPLASIA
     Dosage: 2 MG BID PO
     Route: 048
     Dates: start: 20090510, end: 20090525
  2. PRAZSOIN HCL [Suspect]
     Indication: NIGHTMARE
     Dosage: 2 MG BID PO
     Route: 048
     Dates: start: 20090510, end: 20090525

REACTIONS (1)
  - FATIGUE [None]
